FAERS Safety Report 16957935 (Version 4)
Quarter: 2020Q2

REPORT INFORMATION
  Report Type: Spontaneous
  Country: JP (occurrence: JP)
  Receive Date: 20191024
  Receipt Date: 20200429
  Transmission Date: 20200713
  Serious: Yes (Hospitalization, Other)
  Sender: FDA-Public Use
  Company Number: JP-ASTRAZENECA-2019SF51211

PATIENT
  Age: 24643 Day
  Sex: Male
  Weight: 177 kg

DRUGS (6)
  1. IMFINZI [Suspect]
     Active Substance: DURVALUMAB
     Indication: NON-SMALL CELL LUNG CANCER
     Route: 041
     Dates: start: 20190423, end: 20190806
  2. THIATON [Concomitant]
     Active Substance: TIQUIZIUM BROMIDE
     Route: 048
     Dates: start: 20190827
  3. IMFINZI [Suspect]
     Active Substance: DURVALUMAB
     Indication: NON-SMALL CELL LUNG CANCER
     Route: 041
     Dates: start: 20191015, end: 20191015
  4. MEDICON [Concomitant]
     Active Substance: DEXTROMETHORPHAN HYDROBROMIDE
     Route: 048
     Dates: start: 20190305
  5. MIYA-BM [Concomitant]
     Active Substance: CLOSTRIDIUM BUTYRICUM SPORES STRAIN M-55
     Route: 048
     Dates: start: 20190827
  6. PHELLOBERIN [Concomitant]
     Active Substance: BERBERINE\GERANIUM
     Route: 048
     Dates: start: 20190827

REACTIONS (5)
  - Radiation pneumonitis [Recovering/Resolving]
  - Type 1 diabetes mellitus [Recovered/Resolved]
  - Diarrhoea [Recovering/Resolving]
  - Autoimmune haemolytic anaemia [Recovering/Resolving]
  - Inflammation [Recovering/Resolving]

NARRATIVE: CASE EVENT DATE: 20190625
